FAERS Safety Report 10437407 (Version 1)
Quarter: 2014Q3

REPORT INFORMATION
  Report Type: Spontaneous
  Country: US (occurrence: US)
  Receive Date: 20140908
  Receipt Date: 20140908
  Transmission Date: 20150326
  Serious: Yes (Hospitalization, Other)
  Sender: FDA-Public Use
  Company Number: US-BRISTOL-MYERS SQUIBB COMPANY-20940631

PATIENT
  Age: 28 Year
  Sex: Female

DRUGS (5)
  1. XANAX [Concomitant]
     Active Substance: ALPRAZOLAM
     Dates: start: 2008
  2. CONCERTA [Concomitant]
     Active Substance: METHYLPHENIDATE HYDROCHLORIDE
     Dates: end: 201403
  3. ABILIFY [Suspect]
     Active Substance: ARIPIPRAZOLE
     Indication: DEPRESSION
     Route: 048
     Dates: start: 201403, end: 201403
  4. PROZAC [Suspect]
     Active Substance: FLUOXETINE HYDROCHLORIDE
     Indication: DEPRESSION
     Route: 048
     Dates: start: 2008, end: 201402
  5. SUBOXONE [Suspect]
     Active Substance: BUPRENORPHINE HYDROCHLORIDE\NALOXONE HYDROCHLORIDE
     Dosage: 6MG:2013-FEB2014?8MG:MAR2014-ONGNG
     Route: 060
     Dates: start: 2012, end: 2013

REACTIONS (5)
  - Suicide attempt [Recovered/Resolved]
  - Overdose [Recovered/Resolved]
  - Wrong technique in drug usage process [Unknown]
  - Depression [Recovered/Resolved]
  - Suicidal ideation [Recovered/Resolved]

NARRATIVE: CASE EVENT DATE: 2013
